FAERS Safety Report 7417541-5 (Version None)
Quarter: 2011Q2

REPORT INFORMATION
  Report Type: 
  Country: None (occurrence: None)
  Receive Date: 20110415
  Receipt Date: 20110412
  Transmission Date: 20111010
  Serious: Yes (Hospitalization)
  Sender: FDA-Public Use
  Company Number: US-SANOFI-AVENTIS-2011SA015848

PATIENT
  Age: 76 Year
  Sex: Male
  Weight: 76.66 kg

DRUGS (2)
  1. SOLOSTAR [Suspect]
     Indication: TYPE 2 DIABETES MELLITUS
     Dates: start: 20090101
  2. LANTUS [Suspect]
     Indication: TYPE 2 DIABETES MELLITUS
     Dosage: DOSE:16 UNIT(S)
     Route: 058
     Dates: start: 20090101

REACTIONS (4)
  - CLAVICLE FRACTURE [None]
  - RIB FRACTURE [None]
  - FALL [None]
  - PELVIC FRACTURE [None]
